FAERS Safety Report 22013237 (Version 1)
Quarter: 2023Q1

REPORT INFORMATION
  Report Type: Spontaneous
  Country: DE (occurrence: DE)
  Receive Date: 20230220
  Receipt Date: 20230220
  Transmission Date: 20230418
  Serious: Yes (Death, Other)
  Sender: FDA-Public Use
  Company Number: DE-CELLTRION HEALTHCARE HUNGARY KFT-2023DE000988

PATIENT
  Age: 58 Year
  Sex: Female

DRUGS (11)
  1. METHOTREXATE [Suspect]
     Active Substance: METHOTREXATE
     Indication: Prophylaxis against transplant rejection
     Dosage: UNK
     Route: 065
  2. AZATHIOPRINE [Suspect]
     Active Substance: AZATHIOPRINE
     Indication: Granulomatosis with polyangiitis
     Dosage: 400 MILLIGRAM/SQ. METER (400 MG/M2 (DAY 2)
     Route: 065
  3. CYTARABINE [Suspect]
     Active Substance: CYTARABINE
     Indication: Autologous haematopoietic stem cell transplant
     Dosage: UNK, (1 X R-TT/ARAC)
     Route: 065
  4. CYTARABINE [Suspect]
     Active Substance: CYTARABINE
     Indication: Chemotherapy
     Dosage: 3000 MILLIGRAM/SQ. METER, (3000 MG/M2)
     Route: 065
  5. THIOTEPA [Suspect]
     Active Substance: THIOTEPA
     Indication: Autologous haematopoietic stem cell transplant
     Dosage: UNK, 1 X R-TT/ARAC
     Route: 065
  6. THIOTEPA [Suspect]
     Active Substance: THIOTEPA
     Indication: Chemotherapy
     Dosage: EVERY 0.5 DAY 2X5 MG/KG/DAY FOR 2 DAYS, DAY 3,4
     Route: 042
  7. THIOTEPA [Suspect]
     Active Substance: THIOTEPA
     Dosage: 10 MILLIGRAM/SQ. METER, 10 MG/M2
     Route: 065
  8. THIOTEPA [Suspect]
     Active Substance: THIOTEPA
     Dosage: 40 MILLIGRAM/SQ. METER, 40 MG/M2
     Route: 065
  9. RITUXIMAB [Suspect]
     Active Substance: RITUXIMAB
     Indication: Chemotherapy
     Dosage: UNK, 1 X R-TT/ARAC
     Route: 065
  10. RITUXIMAB [Suspect]
     Active Substance: RITUXIMAB
     Indication: Autologous haematopoietic stem cell transplant
     Dosage: 375 MILLIGRAM/SQ. METER, 375 MG/M2 (DAY 1)
     Route: 042
  11. CARMUSTINE [Suspect]
     Active Substance: CARMUSTINE
     Indication: Autologous haematopoietic stem cell transplant
     Dosage: 400 MILLIGRAM/SQ. METER,400 MG/M2 (DAY 2)
     Route: 042

REACTIONS (3)
  - Disease progression [Fatal]
  - Infection [Unknown]
  - Off label use [Unknown]
